FAERS Safety Report 15491842 (Version 1)
Quarter: 2018Q4

REPORT INFORMATION
  Report Type: Spontaneous
  Country: IN (occurrence: IN)
  Receive Date: 20181012
  Receipt Date: 20181012
  Transmission Date: 20190205
  Serious: Yes (Hospitalization, Other)
  Sender: FDA-Public Use
  Company Number: IN-ACCORD-073299

PATIENT
  Age: 37 Year
  Sex: Male

DRUGS (7)
  1. MEROPENEM. [Concomitant]
     Active Substance: MEROPENEM
     Indication: LOWER RESPIRATORY TRACT INFECTION BACTERIAL
     Route: 042
     Dates: start: 2015
  2. VALGANCICLOVIR/VALGANCICLOVIR HYDROCHLORIDE [Concomitant]
     Indication: ANTIVIRAL PROPHYLAXIS
     Dates: start: 2015
  3. PREDNISOLONE. [Suspect]
     Active Substance: PREDNISOLONE
     Indication: IMMUNOSUPPRESSANT DRUG THERAPY
     Dates: start: 201503
  4. SULFAMETHOXAZOLE/TRIMETHOPRIM [Concomitant]
     Active Substance: SULFAMETHOXAZOLE\TRIMETHOPRIM
     Indication: ANTIVIRAL PROPHYLAXIS
     Dosage: DOUBLE-STRENGTH
     Dates: start: 2015
  5. DILTIAZEM. [Concomitant]
     Active Substance: DILTIAZEM
     Dates: start: 2015
  6. MYCOPHENOLIC ACID. [Suspect]
     Active Substance: MYCOPHENOLIC ACID
     Indication: IMMUNOSUPPRESSANT DRUG THERAPY
     Dates: start: 201503
  7. TACROLIMUS. [Suspect]
     Active Substance: TACROLIMUS
     Indication: IMMUNOSUPPRESSANT DRUG THERAPY
     Dates: start: 201503

REACTIONS (5)
  - Adenovirus infection [Unknown]
  - Transplant dysfunction [Recovered/Resolved]
  - Tubulointerstitial nephritis [Recovered/Resolved]
  - Lower respiratory tract infection [Unknown]
  - Klebsiella infection [Unknown]

NARRATIVE: CASE EVENT DATE: 2015
